FAERS Safety Report 14337012 (Version 1)
Quarter: 2017Q4

REPORT INFORMATION
  Report Type: Spontaneous
  Country: FR (occurrence: FR)
  Receive Date: 20171229
  Receipt Date: 20171229
  Transmission Date: 20180321
  Serious: Yes (Hospitalization)
  Sender: FDA-Public Use
  Company Number: FR-009507513-1712FRA013792

PATIENT
  Age: 70 Year
  Sex: Female
  Weight: 97.6 kg

DRUGS (16)
  1. DOLIPRANE [Concomitant]
     Active Substance: ACETAMINOPHEN
  2. NEFOPAM HYDROCHLORIDE [Concomitant]
     Active Substance: NEFOPAM HYDROCHLORIDE
  3. LANTUS [Concomitant]
     Active Substance: INSULIN GLARGINE
  4. STILNOX [Concomitant]
     Active Substance: ZOLPIDEM TARTRATE
  5. CALCIPARINE [Concomitant]
     Active Substance: HEPARIN CALCIUM
  6. PRAVASTATIN SODIUM. [Concomitant]
     Active Substance: PRAVASTATIN SODIUM
  7. PIPERACILLIN AND TAZOBACTAM [Suspect]
     Active Substance: PIPERACILLIN SODIUM\TAZOBACTAM SODIUM
     Indication: ERYSIPELAS
     Route: 041
     Dates: start: 20170503, end: 20170503
  8. KARDEGIC [Concomitant]
     Active Substance: ASPIRIN DL-LYSINE
  9. CARBOLEVURE [Concomitant]
     Active Substance: ACTIVATED CHARCOAL\YEAST
  10. LASILIX [Concomitant]
     Active Substance: FUROSEMIDE
  11. INVANZ [Suspect]
     Active Substance: ERTAPENEM SODIUM
     Indication: MORGANELLA INFECTION
     Route: 041
     Dates: start: 20170503, end: 20170518
  12. PANTOPRAZOLE [Concomitant]
     Active Substance: PANTOPRAZOLE
  13. JANUVIA [Concomitant]
     Active Substance: SITAGLIPTIN PHOSPHATE
  14. PRIMPERAN [Concomitant]
     Active Substance: METOCLOPRAMIDE HYDROCHLORIDE
  15. CORDARONE [Concomitant]
     Active Substance: AMIODARONE HYDROCHLORIDE
  16. ECONAZOLE [Concomitant]
     Active Substance: ECONAZOLE

REACTIONS (2)
  - Persecutory delusion [Recovered/Resolved]
  - Confusional state [Recovered/Resolved]

NARRATIVE: CASE EVENT DATE: 201705
